FAERS Safety Report 9196685 (Version 1)
Quarter: 2013Q1

REPORT INFORMATION
  Report Type: Spontaneous
  Country: AT (occurrence: AT)
  Receive Date: 20130328
  Receipt Date: 20130328
  Transmission Date: 20140127
  Serious: Yes (Life-Threatening, Other)
  Sender: FDA-Public Use
  Company Number: AT-JNJFOC-20130211179

PATIENT
  Age: 86 Year
  Sex: Male
  Weight: 76.2 kg

DRUGS (4)
  1. XARELTO [Suspect]
     Indication: THROMBOSIS
     Route: 065
     Dates: start: 201211, end: 201301
  2. RASILEZ [Concomitant]
     Indication: HYPERTENSION
     Route: 048
  3. LASIX RETARD [Concomitant]
     Indication: OEDEMA PERIPHERAL
     Route: 048
  4. CONCOR [Concomitant]
     Indication: GASTROOESOPHAGEAL REFLUX DISEASE
     Route: 048

REACTIONS (2)
  - Small intestinal haemorrhage [Recovered/Resolved]
  - Renal failure acute [Recovered/Resolved]
